FAERS Safety Report 16911352 (Version 1)
Quarter: 2019Q4

REPORT INFORMATION
  Report Type: Spontaneous
  Country: US (occurrence: US)
  Receive Date: 20191013
  Receipt Date: 20191013
  Transmission Date: 20200122
  Serious: No
  Sender: FDA-Public Use
  Company Number: US-ASTRAZENECA-2019SF35543

PATIENT
  Sex: Female
  Weight: 43.5 kg

DRUGS (1)
  1. TAGRISSO [Suspect]
     Active Substance: OSIMERTINIB
     Indication: LUNG NEOPLASM MALIGNANT
     Dosage: 80.0MG UNKNOWN
     Route: 048

REACTIONS (11)
  - Diarrhoea [Unknown]
  - Fatigue [Unknown]
  - Dry mouth [Unknown]
  - Nephrolithiasis [Unknown]
  - Nasal dryness [Unknown]
  - Anxiety [Unknown]
  - Depression [Unknown]
  - Dehydration [Unknown]
  - Weight decreased [Unknown]
  - Decreased appetite [Unknown]
  - Chapped lips [Unknown]
